FAERS Safety Report 4696990-2 (Version None)
Quarter: 2005Q2

REPORT INFORMATION
  Report Type: 
  Country: None (occurrence: None)
  Receive Date: 20050620
  Receipt Date: 20050221
  Transmission Date: 20051028
  Serious: No
  Sender: FDA-Public Use
  Company Number: US-YAMANOUCHI-YPA20050081

PATIENT
  Age: 74 Year
  Sex: Male
  Weight: 77.1115 kg

DRUGS (4)
  1. VESICARE [Suspect]
     Indication: BLADDER DISORDER
     Dosage: 5 MG QD PO
     Route: 048
     Dates: start: 20050218, end: 20050218
  2. ANETHESIA [Suspect]
     Indication: CYSTOSCOPY
     Dates: start: 20050218, end: 20050218
  3. VIAGRA [Concomitant]
  4. VITAMINS [Concomitant]

REACTIONS (2)
  - MUSCULOSKELETAL STIFFNESS [None]
  - PAIN [None]
